FAERS Safety Report 7791508-X (Version None)
Quarter: 2011Q4

REPORT INFORMATION
  Report Type: 
  Country: None (occurrence: None)
  Receive Date: 20111003
  Receipt Date: 20110921
  Transmission Date: 20120403
  Serious: Yes (Other)
  Sender: FDA-Public Use
  Company Number: US-BAYER-201028641NA

PATIENT
  Age: 27 Year
  Sex: Female
  Weight: 91.156 kg

DRUGS (7)
  1. YAZ [Suspect]
     Indication: PRODUCT USED FOR UNKNOWN INDICATION
     Dosage: UNK
     Route: 048
     Dates: start: 20061001, end: 20071101
  2. LORTAB [Concomitant]
  3. CELEXA [Concomitant]
  4. YAZ [Suspect]
     Dosage: UNK
     Dates: start: 20080301, end: 20091001
  5. YASMIN [Suspect]
     Indication: PRODUCT USED FOR UNKNOWN INDICATION
     Dosage: UNK
     Route: 048
     Dates: start: 20040401, end: 20061001
  6. PHENTERMINE [Concomitant]
  7. CITALOPRAM [Concomitant]
     Dosage: UNK
     Dates: start: 20041201, end: 20090801

REACTIONS (3)
  - BILIARY DYSKINESIA [None]
  - GALLBLADDER DISORDER [None]
  - CHOLECYSTITIS CHRONIC [None]
